FAERS Safety Report 8367290-4 (Version None)
Quarter: 2012Q2

REPORT INFORMATION
  Report Type: 
  Country: None (occurrence: None)
  Receive Date: 20120517
  Receipt Date: 20120508
  Transmission Date: 20120825
  Serious: Yes (Other)
  Sender: FDA-Public Use
  Company Number: DE-BRISTOL-MYERS SQUIBB COMPANY-16577207

PATIENT
  Sex: Male
  Weight: 2 kg

DRUGS (1)
  1. BARACLUDE [Suspect]
     Route: 064

REACTIONS (1)
  - COCKAYNE'S SYNDROME [None]
